FAERS Safety Report 4766407-8 (Version None)
Quarter: 2005Q3

REPORT INFORMATION
  Report Type: 
  Country: None (occurrence: None)
  Receive Date: 20050908
  Receipt Date: 20050829
  Transmission Date: 20060218
  Serious: Yes (Other)
  Sender: FDA-Public Use
  Company Number: 2005121181

PATIENT
  Sex: Male
  Weight: 113.3993 kg

DRUGS (7)
  1. XANAX [Suspect]
     Indication: DEPRESSION
     Dosage: 1 MG (1 MG, 1 IN 1 D), ORAL
     Route: 048
     Dates: start: 20010101, end: 20020101
  2. ZYPREXA [Suspect]
     Indication: DEPRESSION
  3. ALPRAZOLAM [Suspect]
     Indication: DEPRESSION
     Dosage: 2 MG (2 MG, 1 IN 1 D)
     Dates: start: 20050801
  4. KLONOPIN [Concomitant]
  5. METHOTREXATE [Concomitant]
  6. SOMA [Concomitant]
  7. LUNESTA [Concomitant]

REACTIONS (7)
  - DIABETES MELLITUS [None]
  - DRUG INEFFECTIVE [None]
  - INSOMNIA [None]
  - LOSS OF CONSCIOUSNESS [None]
  - OSTEOARTHRITIS [None]
  - RIB FRACTURE [None]
  - SOMNOLENCE [None]
